FAERS Safety Report 11525813 (Version 2)
Quarter: 2018Q1

REPORT INFORMATION
  Report Type: Spontaneous
  Country: US (occurrence: US)
  Receive Date: 20150918
  Receipt Date: 20180220
  Transmission Date: 20180508
  Serious: No
  Sender: FDA-Public Use
  Company Number: US-ACTELION PHARMACEUTICALS US, INC.-A-NJ2015-124062

PATIENT
  Age: 60 Year
  Sex: Female

DRUGS (11)
  1. VALCHLOR [Suspect]
     Active Substance: MECHLORETHAMINE
     Indication: MYCOSIS FUNGOIDES
     Dosage: UNK
     Route: 061
     Dates: start: 20141126
  2. LOSARTAN POTASSIUM. [Concomitant]
     Active Substance: LOSARTAN POTASSIUM
  3. ATENOLOL. [Concomitant]
     Active Substance: ATENOLOL
  4. TRIAMCINOLONE ACETONIDE. [Concomitant]
     Active Substance: TRIAMCINOLONE ACETONIDE
  5. LEVOTHYROXINE SODIUM. [Concomitant]
     Active Substance: LEVOTHYROXINE SODIUM
  6. OMEPRAZOLE. [Concomitant]
     Active Substance: OMEPRAZOLE
  7. ATORVASTATIN CALCIUM. [Concomitant]
     Active Substance: ATORVASTATIN CALCIUM
  8. METHOTREXATE. [Concomitant]
     Active Substance: METHOTREXATE
  9. FENOFIBRATE. [Concomitant]
     Active Substance: FENOFIBRATE
  10. FOLIC ACID. [Concomitant]
     Active Substance: FOLIC ACID
  11. AMITRIPTYLINE HCL [Concomitant]
     Active Substance: AMITRIPTYLINE

REACTIONS (3)
  - Disease progression [Unknown]
  - Hypersensitivity [Unknown]
  - Mycosis fungoides [Unknown]
